FAERS Safety Report 9462229 (Version 1)
Quarter: 2013Q3

REPORT INFORMATION
  Report Type: Spontaneous
  Country: FR (occurrence: FR)
  Receive Date: 20130816
  Receipt Date: 20130816
  Transmission Date: 20140515
  Serious: Yes (Life-Threatening, Hospitalization, Other)
  Sender: FDA-Public Use
  Company Number: FR-ELI_LILLY_AND_COMPANY-FR201308002761

PATIENT
  Age: 35 Year
  Sex: Female

DRUGS (13)
  1. ZYPREXA [Suspect]
     Dosage: 15 MG, QD
     Route: 048
  2. CYMBALTA [Suspect]
     Dosage: 30 MG, QD
  3. NEOMERCAZOLE [Suspect]
     Dosage: 40 MG, QD
     Route: 048
     Dates: start: 20130211, end: 201304
  4. NEOMERCAZOLE [Suspect]
     Dosage: 20 MG, UNK
  5. SERESTA [Suspect]
     Dosage: 40 MG, QD
     Route: 048
  6. NORSET [Suspect]
     Dosage: 30 MG, QD
     Route: 048
  7. METHOTREXATE [Concomitant]
  8. METFORMINE [Concomitant]
  9. LASILIX                            /00032601/ [Concomitant]
  10. ZOPICLONE [Concomitant]
  11. PARACETAMOL [Concomitant]
  12. AERIUS                             /01398501/ [Concomitant]
  13. DIFFU K [Concomitant]

REACTIONS (2)
  - Renal failure acute [Recovered/Resolved with Sequelae]
  - Staphylococcal sepsis [Unknown]
